FAERS Safety Report 10159922 (Version 1)
Quarter: 2014Q2

REPORT INFORMATION
  Report Type: Spontaneous
  Country: US (occurrence: None)
  Receive Date: 20140507
  Receipt Date: 20140507
  Transmission Date: 20141212
  Serious: Yes (Death, Life-Threatening)
  Sender: FDA-Public Use
  Company Number: None

PATIENT
  Age: 60 Year
  Sex: Male
  Weight: 90.72 kg

DRUGS (3)
  1. LEUPROLIDE [Suspect]
     Indication: ANTIANDROGEN THERAPY
  2. VITAMIN E [Concomitant]
  3. FISH OIL [Concomitant]

REACTIONS (13)
  - Sunburn [None]
  - Ulcer [None]
  - Inflammation [None]
  - Arthralgia [None]
  - Nodule [None]
  - Hyperhidrosis [None]
  - Ageusia [None]
  - Dysuria [None]
  - Pharyngeal disorder [None]
  - Gingival disorder [None]
  - Malignant neoplasm progression [None]
  - Hypoaesthesia [None]
  - Skin ulcer [None]
